FAERS Safety Report 17112590 (Version 1)
Quarter: 2019Q4

REPORT INFORMATION
  Report Type: Spontaneous
  Country: US (occurrence: US)
  Receive Date: 20191204
  Receipt Date: 20191204
  Transmission Date: 20200122
  Serious: No
  Sender: FDA-Public Use
  Company Number: US-ALKERMES INC.-ALK-2019-006043

PATIENT
  Age: 33 Year
  Sex: Male
  Weight: 84.35 kg

DRUGS (1)
  1. VIVITROL [Suspect]
     Active Substance: NALTREXONE
     Indication: ALCOHOLISM
     Dosage: 380 MG, QMO
     Route: 030
     Dates: start: 201911

REACTIONS (17)
  - Suicidal ideation [Unknown]
  - Feeling hot [Unknown]
  - Gait disturbance [Unknown]
  - Dysgeusia [Unknown]
  - Hyperhidrosis [Unknown]
  - Injection site bruising [Recovered/Resolved]
  - Feeling of despair [Unknown]
  - Dyspnoea [Unknown]
  - Emotional poverty [Unknown]
  - Crying [Unknown]
  - Dizziness [Unknown]
  - Injection site reaction [Not Recovered/Not Resolved]
  - Injection site mass [Not Recovered/Not Resolved]
  - Emotional disorder [Unknown]
  - Alcoholism [Unknown]
  - Injection site pain [Not Recovered/Not Resolved]
  - Injection site induration [Unknown]

NARRATIVE: CASE EVENT DATE: 201911
